FAERS Safety Report 9735472 (Version 1)
Quarter: 2013Q4

REPORT INFORMATION
  Report Type: Spontaneous
  Country: US (occurrence: US)
  Receive Date: 20131206
  Receipt Date: 20131206
  Transmission Date: 20140711
  Serious: No
  Sender: FDA-Public Use
  Company Number: US-GILEAD-2009-0023292

PATIENT
  Age: 53 Year
  Sex: Female

DRUGS (9)
  1. LETAIRIS [Suspect]
     Indication: PULMONARY ARTERIAL HYPERTENSION
  2. REVATIO [Concomitant]
  3. LASIX [Concomitant]
  4. POTASSIUM [Concomitant]
  5. LORTAB [Concomitant]
  6. COLCHICINE [Concomitant]
  7. HYDRALAZINE [Concomitant]
  8. GLYBURIDE [Concomitant]
  9. BYETTA [Concomitant]

REACTIONS (1)
  - Nasal congestion [Not Recovered/Not Resolved]
